FAERS Safety Report 10541581 (Version 1)
Quarter: 2014Q4

REPORT INFORMATION
  Report Type: Spontaneous
  Country: CH (occurrence: CH)
  Receive Date: 20141024
  Receipt Date: 20141024
  Transmission Date: 20150529
  Serious: Yes (Other)
  Sender: FDA-Public Use
  Company Number: CH-TEVA-515801ISR

PATIENT
  Age: 17 Year
  Sex: Female

DRUGS (2)
  1. CLARITHROCIN-MEPHA 500MG [Suspect]
     Active Substance: CLARITHROMYCIN
     Indication: SINUSITIS
     Dosage: 1000 MILLIGRAM DAILY;
     Route: 048
     Dates: start: 20140715, end: 20140721
  2. TRIOFAN [Concomitant]
     Active Substance: XYLOMETAZOLINE
     Indication: SINUSITIS
     Route: 045
     Dates: start: 20140715, end: 20140721

REACTIONS (3)
  - Panic attack [Not Recovered/Not Resolved]
  - Depressed mood [Not Recovered/Not Resolved]
  - Fatigue [Not Recovered/Not Resolved]

NARRATIVE: CASE EVENT DATE: 201407
